FAERS Safety Report 5089838-8 (Version None)
Quarter: 2006Q3

REPORT INFORMATION
  Report Type: 
  Country: None (occurrence: None)
  Receive Date: 20060825
  Receipt Date: 20060329
  Transmission Date: 20061208
  Serious: Yes (Hospitalization)
  Sender: FDA-Public Use
  Company Number: PHBS2006JP04864

PATIENT
  Age: 56 Year
  Sex: Female
  Weight: 46 kg

DRUGS (3)
  1. TOFRANIL [Suspect]
     Indication: PANIC DISORDER
     Dates: start: 20060101
  2. TOFRANIL [Suspect]
     Dosage: 10 MG/D
     Route: 048
     Dates: start: 20050430, end: 20051209
  3. MEILAX [Concomitant]
     Indication: PANIC DISORDER
     Dosage: 1 MG/D
     Route: 048

REACTIONS (3)
  - GLOSSITIS [None]
  - GLOSSODYNIA [None]
  - ORAL PAIN [None]
